FAERS Safety Report 8322317-0 (Version None)
Quarter: 2012Q2

REPORT INFORMATION
  Report Type: 
  Country: None (occurrence: None)
  Receive Date: 20120430
  Receipt Date: 20120424
  Transmission Date: 20120825
  Serious: Yes (Other)
  Sender: FDA-Public Use
  Company Number: PHHY2012NL035478

PATIENT
  Sex: Female
  Weight: 85 kg

DRUGS (3)
  1. CYRESS [Concomitant]
     Dosage: 10 MG, UNK
  2. BETAHISTINE [Concomitant]
     Dosage: 8 MG, UNK
  3. DIOVAN [Suspect]
     Indication: HYPERTENSION
     Dosage: 80 MG, UNK
     Dates: start: 19960101, end: 20120405

REACTIONS (4)
  - FALL [None]
  - LOSS OF CONSCIOUSNESS [None]
  - MUSCULOSKELETAL STIFFNESS [None]
  - DIZZINESS [None]
